FAERS Safety Report 7373292-7 (Version None)
Quarter: 2011Q1

REPORT INFORMATION
  Report Type: 
  Country: None (occurrence: None)
  Receive Date: 20110324
  Receipt Date: 20110228
  Transmission Date: 20110831
  Serious: No
  Sender: FDA-Public Use
  Company Number: US-B.I. PHARMACEUTICALS,INC./RIDGEFIELD-2011-BP-07218BP

PATIENT
  Age: 55 Year
  Sex: Male

DRUGS (3)
  1. MICARDIS [Suspect]
     Indication: HYPERTENSION
     Dosage: 40 MG
     Route: 048
     Dates: start: 20070101
  2. FLOMAX [Concomitant]
  3. ZANTAC [Concomitant]

REACTIONS (4)
  - HYPOACUSIS [None]
  - OTORRHOEA [None]
  - EAR INFECTION [None]
  - EAR DISCOMFORT [None]
